FAERS Safety Report 17833610 (Version 1)
Quarter: 2020Q2

REPORT INFORMATION
  Report Type: Spontaneous
  Country: US (occurrence: US)
  Receive Date: 20200527
  Receipt Date: 20200527
  Transmission Date: 20200714
  Serious: Yes (Other)
  Sender: FDA-Public Use
  Company Number: None

PATIENT
  Age: 69 Year
  Sex: Male
  Weight: 112.5 kg

DRUGS (22)
  1. ACETAMINOPHEN. [Concomitant]
     Active Substance: ACETAMINOPHEN
     Dates: start: 20200519, end: 20200523
  2. FAMOTIDINE. [Concomitant]
     Active Substance: FAMOTIDINE
  3. METHYLPREDNISOLONE SODIUM SUCCINATE. [Concomitant]
     Active Substance: METHYLPREDNISOLONE SODIUM SUCCINATE
  4. ALSO: QUETIAPINE, TAMSULOSIN, ZINC SULFATE, + ZOSYN [Concomitant]
  5. ATORVASTATIN [Concomitant]
     Active Substance: ATORVASTATIN
  6. GUAIFENESIN. [Concomitant]
     Active Substance: GUAIFENESIN
  7. APIXABAN [Concomitant]
     Active Substance: APIXABAN
  8. DONEPEZIL. [Concomitant]
     Active Substance: DONEPEZIL
  9. INSULIN REGULAR HUMAN [Concomitant]
  10. PANTOPRAZOLE [Concomitant]
     Active Substance: PANTOPRAZOLE
  11. AMLODIPINE [Concomitant]
     Active Substance: AMLODIPINE BESYLATE
  12. ASPIRIN EC [Concomitant]
     Active Substance: ASPIRIN
  13. BENZTROPINE. [Concomitant]
     Active Substance: BENZTROPINE
  14. DIVALPROEX [Concomitant]
     Active Substance: DIVALPROEX SODIUM
  15. INSULIN GLARGINE [Concomitant]
     Active Substance: INSULIN GLARGINE
  16. IPRATROPIUM/ALBUTEROL INHALATION [Concomitant]
  17. CARVEDILOL. [Concomitant]
     Active Substance: CARVEDILOL
  18. LORATADINE. [Concomitant]
     Active Substance: LORATADINE
  19. FUROSEMIDE. [Concomitant]
     Active Substance: FUROSEMIDE
  20. MONTELUKAST [Concomitant]
     Active Substance: MONTELUKAST SODIUM
  21. REMDESIVIR. [Suspect]
     Active Substance: REMDESIVIR
     Indication: COVID-19
     Route: 042
     Dates: start: 20200519, end: 20200523
  22. IBRUTINIB [Concomitant]
     Active Substance: IBRUTINIB

REACTIONS (3)
  - Pyrexia [None]
  - Ventricular tachycardia [None]
  - Condition aggravated [None]

NARRATIVE: CASE EVENT DATE: 20200522
